FAERS Safety Report 13039779 (Version 1)
Quarter: 2016Q4

REPORT INFORMATION
  Report Type: Spontaneous
  Country: US (occurrence: US)
  Receive Date: 20161219
  Receipt Date: 20161219
  Transmission Date: 20170207
  Serious: No
  Sender: FDA-Public Use
  Company Number: US-ACTELION-A-US2016-140548

PATIENT
  Age: 43 Year
  Sex: Male

DRUGS (20)
  1. CLARITHROMYCIN. [Concomitant]
     Active Substance: CLARITHROMYCIN
  2. KEPPRA [Concomitant]
     Active Substance: LEVETIRACETAM
  3. OMEPRAZOLE. [Concomitant]
     Active Substance: OMEPRAZOLE
  4. LASIX [Concomitant]
     Active Substance: FUROSEMIDE
  5. PREDNISONE. [Concomitant]
     Active Substance: PREDNISONE
  6. WARFARIN [Concomitant]
     Active Substance: WARFARIN
  7. DOXYCYCLINE. [Concomitant]
     Active Substance: DOXYCYCLINE
  8. DILTIAZEM CD [Concomitant]
     Active Substance: DILTIAZEM
  9. ERYTHROCIN [Concomitant]
     Active Substance: ERYTHROMYCIN LACTOBIONATE
  10. CALCIUM [Concomitant]
     Active Substance: CALCIUM
  11. UPTRAVI [Suspect]
     Active Substance: SELEXIPAG
     Indication: PULMONARY ARTERIAL HYPERTENSION
     Dosage: UNK
     Route: 048
  12. ADCIRCA [Suspect]
     Active Substance: TADALAFIL
     Indication: PRODUCT USED FOR UNKNOWN INDICATION
     Route: 065
  13. MATZIM LA [Concomitant]
     Active Substance: DILTIAZEM HYDROCHLORIDE
  14. AMBRISENTAN [Suspect]
     Active Substance: AMBRISENTAN
     Indication: PULMONARY ARTERIAL HYPERTENSION
     Dosage: 10 MG, QD
     Route: 048
     Dates: start: 20120709
  15. ASPIRIN. [Concomitant]
     Active Substance: ASPIRIN
  16. POTASSIUM CHLORIDE. [Concomitant]
     Active Substance: POTASSIUM CHLORIDE
  17. LINEZOLID. [Concomitant]
     Active Substance: LINEZOLID
  18. SPIRONOLACTONE. [Concomitant]
     Active Substance: SPIRONOLACTONE
  19. METFORMIN [Concomitant]
     Active Substance: METFORMIN HYDROCHLORIDE
  20. ONDANSETRON [Concomitant]
     Active Substance: ONDANSETRON
     Dosage: 1600 MCG, BID

REACTIONS (2)
  - Headache [Unknown]
  - Pain in jaw [Unknown]
